FAERS Safety Report 14460963 (Version 1)
Quarter: 2018Q1

REPORT INFORMATION
  Report Type: Spontaneous
  Country: US (occurrence: US)
  Receive Date: 20180130
  Receipt Date: 20180130
  Transmission Date: 20180509
  Serious: No
  Sender: FDA-Public Use
  Company Number: US-PFIZER INC-2018038800

PATIENT

DRUGS (4)
  1. ADVIL [Suspect]
     Active Substance: IBUPROFEN
     Dosage: UNK
  2. SUCRALOSE [Suspect]
     Active Substance: SUCRALOSE
     Dosage: UNK
  3. ACESULFAME [Suspect]
     Active Substance: ACESULFAME POTASSIUM
     Dosage: UNK
  4. ASPARTAME [Suspect]
     Active Substance: ASPARTAME
     Dosage: UNK

REACTIONS (2)
  - Reaction to excipient [Unknown]
  - Migraine [Unknown]
